FAERS Safety Report 5393578-5 (Version None)
Quarter: 2007Q3

REPORT INFORMATION
  Report Type: 
  Country: None (occurrence: None)
  Receive Date: 20070723
  Receipt Date: 20060906
  Transmission Date: 20080115
  Serious: No
  Sender: FDA-Public Use
  Company Number: A0619294A

PATIENT
  Sex: Male

DRUGS (2)
  1. AVANDIA [Suspect]
  2. BYETTA [Suspect]
     Dosage: 5MCG TWICE PER DAY
     Route: 058
     Dates: start: 20060401

REACTIONS (6)
  - DECREASED APPETITE [None]
  - INCREASED APPETITE [None]
  - INJECTION SITE URTICARIA [None]
  - RESPIRATORY TRACT CONGESTION [None]
  - WEIGHT DECREASED [None]
  - WEIGHT INCREASED [None]
